FAERS Safety Report 12382806 (Version 2)
Quarter: 2016Q2

REPORT INFORMATION
  Report Type: Spontaneous
  Country: KR (occurrence: KR)
  Receive Date: 20160518
  Receipt Date: 20160526
  Transmission Date: 20160815
  Serious: Yes (Other)
  Sender: FDA-Public Use
  Company Number: KR-BAUSCH-BL-2016-010782

PATIENT
  Age: 5 Decade
  Sex: Female

DRUGS (1)
  1. PHENDIMETRAZINE [Suspect]
     Active Substance: PHENDIMETRAZINE
     Indication: DECREASED APPETITE
     Route: 065

REACTIONS (4)
  - Chest discomfort [Unknown]
  - Retinal vein occlusion [Recovering/Resolving]
  - Blood pressure increased [Recovering/Resolving]
  - Headache [Unknown]
